FAERS Safety Report 15570760 (Version 1)
Quarter: 2018Q4

REPORT INFORMATION
  Report Type: Spontaneous
  Country: US (occurrence: US)
  Receive Date: 20181031
  Receipt Date: 20181031
  Transmission Date: 20190205
  Serious: No
  Sender: FDA-Public Use
  Company Number: US-TEVA-2018-US-968638

PATIENT
  Age: 46 Year
  Sex: Female

DRUGS (1)
  1. CLONAZEPAM ACTAVIS [Suspect]
     Active Substance: CLONAZEPAM
     Indication: ANXIETY
     Dosage: .5 MILLIGRAM DAILY; NIGHT TIME
     Route: 048
     Dates: start: 20181012

REACTIONS (5)
  - Withdrawal syndrome [Recovered/Resolved]
  - Rash [Recovered/Resolved]
  - Palpitations [Recovered/Resolved]
  - Product substitution issue [Unknown]
  - Product use in unapproved indication [Unknown]

NARRATIVE: CASE EVENT DATE: 201810
